FAERS Safety Report 4969297-3 (Version None)
Quarter: 2006Q2

REPORT INFORMATION
  Report Type: 
  Country: None (occurrence: None)
  Receive Date: 20060405
  Receipt Date: 20060329
  Transmission Date: 20061013
  Serious: Yes (Other)
  Sender: FDA-Public Use
  Company Number: 2006044327

PATIENT
  Age: 62 Year
  Sex: Male
  Weight: 79.8331 kg

DRUGS (6)
  1. NORVASC [Suspect]
     Indication: HYPERTENSION
     Dosage: 5 MG (5 MG, 1 IN 1 D),
     Dates: start: 20050101
  2. FOLIC ACID [Concomitant]
  3. MULTIVITAMIN [Concomitant]
  4. MAGNESIUM (MAGNESIUM) [Concomitant]
  5. POTASSIUM (POTASSIUM) [Concomitant]
  6. CALCIUM (CALCIUM) [Concomitant]

REACTIONS (2)
  - PROTEIN URINE PRESENT [None]
  - RENAL CYST [None]
